FAERS Safety Report 14849845 (Version 6)
Quarter: 2019Q1

REPORT INFORMATION
  Report Type: Report from Study
  Country: US (occurrence: US)
  Receive Date: 20180504
  Receipt Date: 20190201
  Transmission Date: 20190417
  Serious: Yes (Hospitalization)
  Sender: FDA-Public Use
  Company Number: US-ACTELION-A-US2018-171532

PATIENT
  Age: 72 Year
  Sex: Female

DRUGS (6)
  1. OPSUMIT [Suspect]
     Active Substance: MACITENTAN
     Indication: PULMONARY ARTERIAL HYPERTENSION
     Dosage: 10 MG, QD
     Route: 048
     Dates: start: 20170619
  2. IRON [Concomitant]
     Active Substance: IRON
     Dosage: UNK
     Dates: start: 201805
  3. ADEMPAS [Concomitant]
     Active Substance: RIOCIGUAT
  4. UPTRAVI [Suspect]
     Active Substance: SELEXIPAG
     Indication: PULMONARY ARTERIAL HYPERTENSION
     Dosage: 600 MCG, BID
     Route: 048
  5. ALLOPURINOL. [Concomitant]
     Active Substance: ALLOPURINOL
  6. FOLIC ACID. [Concomitant]
     Active Substance: FOLIC ACID
     Dosage: UNK
     Dates: start: 201805

REACTIONS (12)
  - Influenza [Unknown]
  - Fluid retention [Unknown]
  - Pain in extremity [Unknown]
  - Sinus headache [Not Recovered/Not Resolved]
  - Pneumonia [Unknown]
  - Gout [Unknown]
  - Catheterisation cardiac [Unknown]
  - Pyrexia [Unknown]
  - Weight bearing difficulty [Unknown]
  - Headache [Unknown]
  - Asthenia [Unknown]
  - Mineral supplementation [Unknown]

NARRATIVE: CASE EVENT DATE: 20180330
